FAERS Safety Report 20018008 (Version 1)
Quarter: 2021Q4

REPORT INFORMATION
  Report Type: Spontaneous
  Country: US (occurrence: US)
  Receive Date: 20211101
  Receipt Date: 20211101
  Transmission Date: 20220303
  Serious: No
  Sender: FDA-Public Use
  Company Number: US-ELI_LILLY_AND_COMPANY-US202110012024

PATIENT
  Sex: Male

DRUGS (2)
  1. LYUMJEV [Suspect]
     Active Substance: INSULIN LISPRO-AABC
     Indication: Product used for unknown indication
     Dosage: UNK UNK, UNKNOWN
     Route: 058
     Dates: start: 20211005
  2. LYUMJEV [Suspect]
     Active Substance: INSULIN LISPRO-AABC
     Dosage: UNK UNK, UNKNOWN
     Route: 058

REACTIONS (9)
  - Tinnitus [Unknown]
  - Pollakiuria [Unknown]
  - Blood glucose increased [Unknown]
  - Infusion site erythema [Unknown]
  - Infusion site pain [Unknown]
  - Infusion site inflammation [Unknown]
  - Infusion site swelling [Unknown]
  - Infusion site irritation [Unknown]
  - Incorrect dose administered [Unknown]
